FAERS Safety Report 10084839 (Version 3)
Quarter: 2014Q2

REPORT INFORMATION
  Report Type: Spontaneous
  Country: JP (occurrence: JP)
  Receive Date: 20140417
  Receipt Date: 20140509
  Transmission Date: 20141212
  Serious: Yes (Life-Threatening, Hospitalization, Other)
  Sender: FDA-Public Use
  Company Number: JP-TAKEDA-2014TJP004980

PATIENT
  Age: 8 Decade
  Sex: Male

DRUGS (8)
  1. LEUPLIN SR FOR INJECTION KIT 11.25 [Suspect]
     Indication: PROSTATE CANCER
     Dosage: UNK
     Route: 058
     Dates: end: 2013
  2. ROZEREM TABLETS 8MG. [Suspect]
     Dosage: UNK
     Route: 048
  3. EURODIN 1MG. TABLETS [Suspect]
     Dosage: UNK UNK, PRN
     Route: 048
  4. VOLTAREN                           /00372302/ [Suspect]
     Dosage: UNK
     Route: 048
  5. SERENACE [Concomitant]
     Dosage: UNK
     Route: 048
  6. MYSLEE [Concomitant]
     Dosage: UNK
     Route: 048
  7. AMLODIPINE BESILATE [Concomitant]
     Dosage: UNK
     Route: 048
  8. IMIDAPRIL HYDROCHLORIDE [Concomitant]
     Dosage: UNK
     Route: 048

REACTIONS (17)
  - Ulcer haemorrhage [Unknown]
  - Spinal column stenosis [Unknown]
  - Fall [Recovered/Resolved]
  - Vertigo [Recovered/Resolved]
  - Spinal deformity [Unknown]
  - Fracture [Unknown]
  - Nail disorder [Unknown]
  - Hypoaesthesia [Unknown]
  - Lip disorder [Unknown]
  - Anaemia [Unknown]
  - Insomnia [Unknown]
  - Osteoporosis [Unknown]
  - Gait disturbance [Unknown]
  - Cataract [Unknown]
  - Lacrimation increased [Unknown]
  - Visual field defect [Unknown]
  - Abdominal pain [Unknown]
